FAERS Safety Report 10175725 (Version 2)
Quarter: 2014Q2

REPORT INFORMATION
  Report Type: Spontaneous
  Country: GR (occurrence: GR)
  Receive Date: 20140516
  Receipt Date: 20140520
  Transmission Date: 20141212
  Serious: Yes (Other)
  Sender: FDA-Public Use
  Company Number: GR-009507513-1405GRC007227

PATIENT
  Age: 56 Year
  Sex: Male
  Weight: 71 kg

DRUGS (3)
  1. JANUMET [Suspect]
     Indication: TYPE 2 DIABETES MELLITUS
     Dosage: 1 TABLET IN THE MORNING AND 1 TABLET AT NIGHT
     Route: 048
     Dates: start: 201311
  2. SOLOSA [Concomitant]
     Dosage: 1 TABLET IN THE MORNING AND 1 TABLET AT NOON
  3. GLUCOPHAGE [Concomitant]
     Dosage: 1 TABLET AT NOON

REACTIONS (4)
  - Loss of consciousness [Recovered/Resolved]
  - Amaurosis [Unknown]
  - Irritability [Recovered/Resolved]
  - Hypoglycaemia [Recovered/Resolved]
